FAERS Safety Report 18575066 (Version 5)
Quarter: 2021Q2

REPORT INFORMATION
  Report Type: Spontaneous
  Country: IN (occurrence: IN)
  Receive Date: 20201203
  Receipt Date: 20210504
  Transmission Date: 20210717
  Serious: Yes (Death, Other)
  Sender: FDA-Public Use
  Company Number: IN-PFIZER INC-2020475486

PATIENT
  Age: 63 Year
  Sex: Female

DRUGS (1)
  1. SUTENT [Suspect]
     Active Substance: SUNITINIB MALATE
     Indication: METASTATIC RENAL CELL CARCINOMA
     Dosage: 50 MG, CYCLIC (ONCE A DAY, 2 WEEKS ON 1 WEEK OFF)
     Route: 048
     Dates: start: 20201208

REACTIONS (6)
  - Death [Fatal]
  - Salivary hypersecretion [Unknown]
  - Hypertension [Unknown]
  - Abdominal pain [Unknown]
  - Hyperchlorhydria [Unknown]
  - Decreased appetite [Unknown]
